FAERS Safety Report 4884283-X (Version None)
Quarter: 2005Q4

REPORT INFORMATION
  Report Type: 
  Country: None (occurrence: None)
  Receive Date: 20051201
  Receipt Date: 20050828
  Transmission Date: 20060501
  Serious: No
  Sender: FDA-Public Use
  Company Number: 2005PV001704

PATIENT
  Age: 69 Year
  Sex: Male
  Weight: 122.4712 kg

DRUGS (6)
  1. BYETTA [Suspect]
     Indication: DIABETES MELLITUS NON-INSULIN-DEPENDENT
     Dosage: 5 MCG;BID;SC
     Route: 058
     Dates: start: 20050826
  2. ASPIRIN [Concomitant]
  3. OMEPRAZOLE [Concomitant]
  4. TIAZAC [Concomitant]
  5. DIOVAN [Concomitant]
  6. FOLTX [Concomitant]

REACTIONS (1)
  - INJECTION SITE BRUISING [None]
